FAERS Safety Report 22048507 (Version 1)
Quarter: 2023Q1

REPORT INFORMATION
  Report Type: Spontaneous
  Country: NL (occurrence: NL)
  Receive Date: 20230301
  Receipt Date: 20230301
  Transmission Date: 20230418
  Serious: Yes (Other)
  Sender: FDA-Public Use
  Company Number: None

PATIENT

DRUGS (2)
  1. FLUTICASONE PROPIONATE [Suspect]
     Active Substance: FLUTICASONE PROPIONATE
     Indication: Asthma
     Dosage: 1 DF, BID, 1 INHALATION TWICE A DAY
     Route: 055
     Dates: start: 20180910, end: 20181003
  2. VENTOLIN [Concomitant]
     Active Substance: ALBUTEROL SULFATE
     Indication: Product used for unknown indication
     Dosage: 100 UG, AEROSOL, 100 ?G/DOSE (MICROGRAMS PER DOSE)
     Route: 055

REACTIONS (2)
  - Angioedema [Recovered/Resolved]
  - Anger [Recovered/Resolved]
